FAERS Safety Report 19148240 (Version 1)
Quarter: 2021Q2

REPORT INFORMATION
  Report Type: Report from Study
  Country: US (occurrence: US)
  Receive Date: 20210416
  Receipt Date: 20210416
  Transmission Date: 20210717
  Serious: Yes (Death)
  Sender: FDA-Public Use
  Company Number: US-ASTRAZENECA-2021A312156

PATIENT
  Age: 24230 Day
  Sex: Male

DRUGS (2)
  1. LYNPARZA [Suspect]
     Active Substance: OLAPARIB
     Indication: LUNG NEOPLASM MALIGNANT
     Route: 048
     Dates: start: 202012
  2. LYNPARZA [Suspect]
     Active Substance: OLAPARIB
     Indication: LYMPHOMA
     Route: 048
     Dates: start: 202012

REACTIONS (1)
  - Death [Fatal]

NARRATIVE: CASE EVENT DATE: 20210226
